FAERS Safety Report 20536040 (Version 1)
Quarter: 2022Q1

REPORT INFORMATION
  Report Type: Spontaneous
  Country: SK (occurrence: SK)
  Receive Date: 20220302
  Receipt Date: 20220302
  Transmission Date: 20220424
  Serious: Yes (Other)
  Sender: FDA-Public Use
  Company Number: SK-BRISTOL-MYERS SQUIBB COMPANY-BMS-2022-017618

PATIENT
  Age: 76 Year
  Sex: Male

DRUGS (2)
  1. ELIQUIS [Suspect]
     Active Substance: APIXABAN
     Indication: Embolism venous
     Dosage: UNK
     Route: 065
     Dates: start: 20220121, end: 20220127
  2. ATORVASTATIN [Suspect]
     Active Substance: ATORVASTATIN
     Indication: Cerebrovascular accident
     Dosage: UNK
     Route: 065
     Dates: start: 20220121, end: 20220127

REACTIONS (3)
  - Rash erythematous [Recovering/Resolving]
  - Skin swelling [Recovering/Resolving]
  - Ocular hyperaemia [Recovering/Resolving]

NARRATIVE: CASE EVENT DATE: 20220128
